FAERS Safety Report 9927595 (Version 5)
Quarter: 2015Q3

REPORT INFORMATION
  Report Type: Report from Study
  Country: US (occurrence: US)
  Receive Date: 20140227
  Receipt Date: 20150922
  Transmission Date: 20151125
  Serious: Yes (Hospitalization, Other)
  Sender: FDA-Public Use
  Company Number: US-BIOGENIDEC-2014BI017468

PATIENT
  Age: 46 Year
  Sex: Male

DRUGS (31)
  1. LAMOTRIGINE. [Concomitant]
     Active Substance: LAMOTRIGINE
     Route: 048
  2. BISACODYL. [Concomitant]
     Active Substance: BISACODYL
     Route: 054
  3. HYDROCODONE BITARTRATE AND ACETAMINOPHEN [Concomitant]
     Active Substance: ACETAMINOPHEN\HYDROCODONE BITARTRATE
     Route: 048
  4. DOCUSATE SODIUM. [Concomitant]
     Active Substance: DOCUSATE SODIUM
     Indication: CONSTIPATION
     Route: 048
  5. CYCLOBENZAPRINE [Concomitant]
     Active Substance: CYCLOBENZAPRINE
     Indication: MUSCLE SPASTICITY
     Route: 048
  6. ALPRAZOLAM. [Concomitant]
     Active Substance: ALPRAZOLAM
     Route: 048
  7. FENOFIBRATE. [Concomitant]
     Active Substance: FENOFIBRATE
     Route: 048
  8. ENOXAPARIN [Concomitant]
     Active Substance: ENOXAPARIN
  9. BACLOFEN. [Concomitant]
     Active Substance: BACLOFEN
     Indication: MUSCLE SPASTICITY
     Route: 048
  10. ONDANSETRON [Concomitant]
     Active Substance: ONDANSETRON
  11. ACETAMINOPHEN. [Concomitant]
     Active Substance: ACETAMINOPHEN
     Indication: PYREXIA
     Route: 048
  12. SENNA [Concomitant]
     Active Substance: SENNA LEAF\SENNOSIDES\SENNOSIDES A AND B
     Route: 048
  13. ACETAMINOPHEN. [Concomitant]
     Active Substance: ACETAMINOPHEN
     Indication: PAIN
     Route: 048
  14. CHOLECALCIFEROL [Concomitant]
     Active Substance: CHOLECALCIFEROL
     Route: 048
  15. XANAX [Concomitant]
     Active Substance: ALPRAZOLAM
     Route: 048
  16. SOLU-MEDROL [Concomitant]
     Active Substance: METHYLPREDNISOLONE SODIUM SUCCINATE
     Route: 042
  17. SIMVASTATIN. [Concomitant]
     Active Substance: SIMVASTATIN
     Route: 048
  18. SIMVASTATIN. [Concomitant]
     Active Substance: SIMVASTATIN
     Route: 048
  19. POLYETHYLENE GLYCOL [Concomitant]
     Active Substance: POLYETHYLENE GLYCOLS
     Route: 048
  20. ACETAMINOPHEN. [Concomitant]
     Active Substance: ACETAMINOPHEN
     Indication: PYREXIA
  21. TYSABRI [Suspect]
     Active Substance: NATALIZUMAB
     Route: 042
     Dates: start: 20120711, end: 20131111
  22. SERTRALINE [Concomitant]
     Active Substance: SERTRALINE HYDROCHLORIDE
     Indication: DEPRESSION
     Route: 048
  23. MORPHINE [Concomitant]
     Active Substance: MORPHINE
  24. OXYBUTYNIN [Concomitant]
     Active Substance: OXYBUTYNIN
     Route: 048
  25. CYCLOBENZAPRINE [Concomitant]
     Active Substance: CYCLOBENZAPRINE
     Indication: MUSCLE SPASMS
     Route: 048
  26. ACETAMINOPHEN. [Concomitant]
     Active Substance: ACETAMINOPHEN
     Indication: PAIN
  27. ASCORBIC ACID. [Concomitant]
     Active Substance: ASCORBIC ACID
     Route: 048
  28. TYSABRI [Suspect]
     Active Substance: NATALIZUMAB
     Indication: MULTIPLE SCLEROSIS
     Route: 042
     Dates: start: 20120711, end: 20131111
  29. OMEPRAZOLE. [Concomitant]
     Active Substance: OMEPRAZOLE
     Route: 048
  30. DEXTROSE. [Concomitant]
     Active Substance: DEXTROSE
  31. FENOFIBRATE. [Concomitant]
     Active Substance: FENOFIBRATE
     Route: 048

REACTIONS (22)
  - Pyrexia [Unknown]
  - Hypokalaemia [Recovered/Resolved]
  - Tachycardia [Unknown]
  - Hypoxia [Recovered/Resolved]
  - Neurogenic bladder [Unknown]
  - Muscular weakness [Unknown]
  - Urinary tract stoma complication [Unknown]
  - Chills [Unknown]
  - Escherichia urinary tract infection [Not Recovered/Not Resolved]
  - Haemorrhage [Unknown]
  - Nephrostomy [Recovered/Resolved]
  - Pulmonary oedema [Unknown]
  - Urinary tract infection pseudomonal [Unknown]
  - Weight decreased [Unknown]
  - Bladder catheterisation [Unknown]
  - Asthenia [Unknown]
  - Urinary tract infection [Recovered/Resolved]
  - Nephrolithiasis [Recovered/Resolved]
  - Device occlusion [Recovered/Resolved]
  - Urosepsis [Unknown]
  - Hypotension [Unknown]
  - Septic shock [Unknown]

NARRATIVE: CASE EVENT DATE: 20130709
